FAERS Safety Report 22135553 (Version 1)
Quarter: 2023Q1

REPORT INFORMATION
  Report Type: Spontaneous
  Country: CN (occurrence: CN)
  Receive Date: 20230324
  Receipt Date: 20230324
  Transmission Date: 20230417
  Serious: Yes (Other)
  Sender: FDA-Public Use
  Company Number: CN-009507513-2303CHN007571

PATIENT
  Age: 82 Year
  Sex: Male
  Weight: 63 kg

DRUGS (2)
  1. CILASTATIN SODIUM\IMIPENEM [Suspect]
     Active Substance: CILASTATIN SODIUM\IMIPENEM
     Indication: Urinary tract infection
     Dosage: 0.5G, Q6H
     Route: 041
     Dates: start: 20230301, end: 20230303
  2. CILASTATIN SODIUM\IMIPENEM [Suspect]
     Active Substance: CILASTATIN SODIUM\IMIPENEM
     Indication: Anti-infective therapy

REACTIONS (2)
  - Delirium [Recovered/Resolved]
  - Dysphoria [Unknown]

NARRATIVE: CASE EVENT DATE: 20230303
